FAERS Safety Report 26179063 (Version 1)
Quarter: 2025Q4

REPORT INFORMATION
  Report Type: Report from Study
  Country: EU (occurrence: EU)
  Receive Date: 20251219
  Receipt Date: 20251219
  Transmission Date: 20260118
  Serious: Yes (Hospitalization, Other)
  Sender: RANBAXY
  Company Number: EU-SUN PHARMACEUTICAL INDUSTRIES LTD-2025R1-498201

PATIENT
  Age: 24 Year
  Sex: Male

DRUGS (3)
  1. GABAPENTIN [Suspect]
     Active Substance: GABAPENTIN
     Indication: Drug use disorder
     Dosage: 900 MILLIGRAM, DAILY
     Route: 065
  2. GABAPENTIN [Suspect]
     Active Substance: GABAPENTIN
     Indication: Off label use
     Dosage: 3200 MILLIGRAM, DAILY, AFTER 1 WEEK
     Route: 065
  3. PREGABALIN [Suspect]
     Active Substance: PREGABALIN
     Indication: Drug abuse
     Dosage: 1500 MILLIGRAM, DAILY
     Route: 065

REACTIONS (8)
  - Drug ineffective for unapproved indication [Unknown]
  - Drug use disorder [Unknown]
  - Drug dependence [Unknown]
  - Toxicity to various agents [Unknown]
  - Withdrawal syndrome [Unknown]
  - Impaired work ability [Unknown]
  - Intentional overdose [Unknown]
  - Family stress [Unknown]
